FAERS Safety Report 17799045 (Version 1)
Quarter: 2020Q2

REPORT INFORMATION
  Report Type: Spontaneous
  Country: DE (occurrence: DE)
  Receive Date: 20200518
  Receipt Date: 20200518
  Transmission Date: 20200714
  Serious: Yes (Hospitalization)
  Sender: FDA-Public Use
  Company Number: DE-TEVA-2020-DE-1235463

PATIENT
  Age: 76 Year
  Sex: Male

DRUGS (5)
  1. COLECALCIFEROL (VITAMIN D) [Concomitant]
     Route: 048
  2. TROSPIUM [Concomitant]
     Active Substance: TROSPIUM
     Dosage: 30 MILLIGRAM DAILY; 1-0-1-0
     Route: 048
  3. CANDESARTAN. [Concomitant]
     Active Substance: CANDESARTAN
     Dosage: 16 MILLIGRAM DAILY; 1-0-0-0
     Route: 048
  4. RIVASTIGMINE. [Suspect]
     Active Substance: RIVASTIGMINE
     Dosage: 4.6 MILLIGRAM DAILY; 1-0-0-0
     Route: 062
  5. LEVOMEPROMAZIN [Suspect]
     Active Substance: LEVOMEPROMAZINE
     Dosage: NK
     Route: 048

REACTIONS (5)
  - Product prescribing error [Unknown]
  - Disorientation [Unknown]
  - Disturbance in attention [Unknown]
  - Syncope [Unknown]
  - Hypotension [Unknown]

NARRATIVE: CASE EVENT DATE: 20200204
